FAERS Safety Report 8092870 (Version 2)
Quarter: 2013Q2

REPORT INFORMATION
  Report Type: Report from Study
  Country: US (occurrence: US)
  Receive Date: 20110816
  Receipt Date: 20130405
  Transmission Date: 20140414
  Serious: Yes (Death, Life-Threatening, Hospitalization, Other)
  Sender: FDA-Public Use
  Company Number: PHHO2010US13188

PATIENT
  Age: 59 Year
  Sex: Male
  Weight: 72.3 kg

DRUGS (9)
  1. QTI571 [Suspect]
     Indication: PULMONARY ARTERIAL HYPERTENSION
     Dosage: 100 MG, UNK
     Route: 048
     Dates: start: 20100811, end: 20100824
  2. QTI571 [Suspect]
     Dosage: 400 MG, QD
     Route: 048
     Dates: start: 20100825, end: 20100826
  3. FLOLAN [Concomitant]
  4. REVATIO [Concomitant]
  5. JANUMET [Concomitant]
  6. LETAIRIS [Concomitant]
  7. DIGOXIN [Concomitant]
  8. ZAROXOLYN [Concomitant]
  9. DIURETICS [Concomitant]

REACTIONS (25)
  - Cardiac arrest [Fatal]
  - Pleural effusion [Not Recovered/Not Resolved]
  - Ascites [Unknown]
  - Abdominal distension [Unknown]
  - Pulmonary hypertension [Fatal]
  - Oedema [Fatal]
  - Fluid retention [Fatal]
  - Right ventricular failure [Fatal]
  - Dilatation ventricular [Fatal]
  - Cardiac septal hypertrophy [Fatal]
  - Ventricular dysfunction [Fatal]
  - Tricuspid valve incompetence [Fatal]
  - Right atrial dilatation [Fatal]
  - Dyspnoea [Fatal]
  - Renal failure acute [Fatal]
  - Oedema peripheral [Not Recovered/Not Resolved]
  - Anuria [Not Recovered/Not Resolved]
  - Pancytopenia [Unknown]
  - Thrombocytopenia [Unknown]
  - Anaemia [Unknown]
  - Pulmonary oedema [Unknown]
  - Renal cyst [Not Recovered/Not Resolved]
  - Splenomegaly [Not Recovered/Not Resolved]
  - Pancreatitis chronic [Not Recovered/Not Resolved]
  - Nephrolithiasis [Not Recovered/Not Resolved]
